FAERS Safety Report 11219866 (Version 1)
Quarter: 2015Q2

REPORT INFORMATION
  Report Type: Spontaneous
  Country: US (occurrence: US)
  Receive Date: 20150625
  Receipt Date: 20150625
  Transmission Date: 20150821
  Serious: Yes (Other)
  Sender: FDA-Public Use
  Company Number: US-SA-2015SA062250

PATIENT
  Age: 79 Year
  Sex: Male

DRUGS (1)
  1. SEVELAMER SALT NOT SPECIFIED [Suspect]
     Active Substance: SEVELAMER
     Route: 048

REACTIONS (4)
  - Mucosal haemorrhage [None]
  - Colitis ischaemic [None]
  - Colitis [Unknown]
  - Mass [None]
